FAERS Safety Report 9019269 (Version 1)
Quarter: 2013Q1

REPORT INFORMATION
  Report Type: Spontaneous
  Country: GB (occurrence: GB)
  Receive Date: 20130118
  Receipt Date: 20130118
  Transmission Date: 20140127
  Serious: Yes (Hospitalization)
  Sender: FDA-Public Use
  Company Number: GB-ASTRAZENECA-2013SE02689

PATIENT
  Age: 66 Year
  Sex: Female

DRUGS (1)
  1. SEROQUEL XL [Suspect]
     Indication: BIPOLAR DISORDER
     Route: 048
     Dates: start: 20121218

REACTIONS (5)
  - Suicidal behaviour [Unknown]
  - Depression [Unknown]
  - Agitation [Unknown]
  - Anxiety [Unknown]
  - Confusional state [Unknown]
